FAERS Safety Report 10712223 (Version 1)
Quarter: 2015Q1

REPORT INFORMATION
  Report Type: Spontaneous
  Country: US (occurrence: US)
  Receive Date: 20150114
  Receipt Date: 20150114
  Transmission Date: 20150721
  Serious: Yes (Death)
  Sender: FDA-Public Use
  Company Number: US-ASTRAZENECA-2015SE01985

PATIENT
  Age: 27 Year
  Sex: Male

DRUGS (6)
  1. PHENOBARBITAL. [Suspect]
     Active Substance: PHENOBARBITAL
     Route: 048
  2. OXYCODONE [Suspect]
     Active Substance: OXYCODONE
     Route: 048
  3. HYDROXYZINE [Suspect]
     Active Substance: HYDROXYZINE\HYDROXYZINE HYDROCHLORIDE
     Route: 048
  4. ZOLPIDEM [Suspect]
     Active Substance: ZOLPIDEM\ZOLPIDEM TARTRATE
     Route: 048
  5. ETHANOL [Suspect]
     Active Substance: ALCOHOL
     Route: 048
  6. QUETIAPINE [Suspect]
     Active Substance: QUETIAPINE
     Route: 048

REACTIONS (2)
  - Completed suicide [Fatal]
  - Toxicity to various agents [Fatal]
